FAERS Safety Report 13717157 (Version 10)
Quarter: 2019Q4

REPORT INFORMATION
  Report Type: Report from Study
  Country: CR (occurrence: CR)
  Receive Date: 20170705
  Receipt Date: 20191021
  Transmission Date: 20200122
  Serious: Yes (Hospitalization, Other)
  Sender: FDA-Public Use
  Company Number: PHHY2016CR183377

PATIENT
  Sex: Female
  Weight: 78 kg

DRUGS (2)
  1. IRON [Concomitant]
     Active Substance: IRON
     Indication: PRODUCT USED FOR UNKNOWN INDICATION
     Route: 065
  2. TASIGNA [Suspect]
     Active Substance: NILOTINIB
     Indication: CHRONIC MYELOID LEUKAEMIA
     Dosage: 1 DF, BID (400 MG)
     Route: 048
     Dates: start: 2016

REACTIONS (35)
  - Breast pain [Unknown]
  - Lymphadenopathy [Unknown]
  - Sleep disorder [Unknown]
  - Musculoskeletal pain [Recovered/Resolved]
  - Bone pain [Unknown]
  - Cough [Unknown]
  - Malaise [Unknown]
  - Influenza [Recovered/Resolved]
  - Sneezing [Unknown]
  - Headache [Unknown]
  - Fatigue [Recovering/Resolving]
  - Feeling cold [Recovered/Resolved]
  - Pyrexia [Unknown]
  - Night sweats [Unknown]
  - Pharyngitis [Unknown]
  - Agitation [Unknown]
  - Skin fissures [Unknown]
  - Musculoskeletal discomfort [Unknown]
  - Toothache [Unknown]
  - Feeling hot [Unknown]
  - Sensitivity to weather change [Unknown]
  - Speech disorder [Unknown]
  - Asphyxia [Not Recovered/Not Resolved]
  - Body temperature fluctuation [Recovering/Resolving]
  - Rash [Not Recovered/Not Resolved]
  - Ovulation pain [Unknown]
  - Neck pain [Unknown]
  - Hypersensitivity [Unknown]
  - Myalgia [Unknown]
  - Uterine disorder [Recovered/Resolved]
  - Hormone level abnormal [Unknown]
  - Personality change [Unknown]
  - Hot flush [Unknown]
  - Pain [Recovering/Resolving]
  - Productive cough [Unknown]
